FAERS Safety Report 16498285 (Version 7)
Quarter: 2019Q3

REPORT INFORMATION
  Report Type: Report from Study
  Country: ES (occurrence: ES)
  Receive Date: 20190629
  Receipt Date: 20190926
  Transmission Date: 20191004
  Serious: Yes (Hospitalization, Other)
  Sender: FDA-Public Use
  Company Number: ES-AUROBINDO-AUR-APL-2017-39257

PATIENT
  Age: 75 Year
  Sex: Female

DRUGS (18)
  1. OMEPRAZOLE. [Concomitant]
     Active Substance: OMEPRAZOLE
     Indication: PRODUCT USED FOR UNKNOWN INDICATION
     Dosage: UNK
     Route: 065
  2. DULOXETINE. [Suspect]
     Active Substance: DULOXETINE
     Indication: ANTIDEPRESSANT THERAPY
  3. SOLIFENACIN [Suspect]
     Active Substance: SOLIFENACIN
     Indication: PRODUCT USED FOR UNKNOWN INDICATION
     Dosage: UNK
     Route: 065
  4. METFORMIN [Concomitant]
     Active Substance: METFORMIN HYDROCHLORIDE
     Indication: TYPE 2 DIABETES MELLITUS
     Dosage: UNK
     Route: 065
  5. DILTIAZEM HYDROCHLORIDE. [Suspect]
     Active Substance: DILTIAZEM HYDROCHLORIDE
     Indication: HYPERTENSION
     Dosage: UNK
     Route: 065
  6. ACETAMINOPHEN. [Concomitant]
     Active Substance: ACETAMINOPHEN
     Indication: PRODUCT USED FOR UNKNOWN INDICATION
     Dosage: UNK
     Route: 065
  7. DULOXETINE. [Suspect]
     Active Substance: DULOXETINE
     Indication: MAJOR DEPRESSION
     Dosage: 60 MILLIGRAM, ONCE A DAY
     Route: 065
     Dates: start: 201506
  8. HYDROCHLOROTHIAZIDE. [Suspect]
     Active Substance: HYDROCHLOROTHIAZIDE
     Indication: HYPERTENSION
     Dosage: UNK
     Route: 065
  9. LEVOSULPIRIDE [Suspect]
     Active Substance: LEVOSULPIRIDE
     Indication: MAJOR DEPRESSION
     Dosage: 25 MILLIGRAM, ONCE A DAY
     Route: 065
  10. TRAZODONE HYDROCHLORIDE. [Suspect]
     Active Substance: TRAZODONE HYDROCHLORIDE
     Indication: MAJOR DEPRESSION
  11. CLOMIPRAMINE [Suspect]
     Active Substance: CLOMIPRAMINE
     Indication: MAJOR DEPRESSION
     Dosage: 50 MILLIGRAM, ONCE A DAY
     Route: 065
  12. LEVOSULPIRIDE [Suspect]
     Active Substance: LEVOSULPIRIDE
     Dosage: 25 MILLIGRAM, 3 TIMES A DAY (8 HOUR)
     Route: 065
  13. ASPIRIN. [Concomitant]
     Active Substance: ASPIRIN
     Indication: PRODUCT USED FOR UNKNOWN INDICATION
     Dosage: UNK
     Route: 065
  14. ENALAPRIL TABLETS [Suspect]
     Active Substance: ENALAPRIL
     Indication: HYPERTENSION
     Dosage: UNK
     Route: 065
  15. TRAZODONE HYDROCHLORIDE. [Suspect]
     Active Substance: TRAZODONE HYDROCHLORIDE
     Indication: ANTIDEPRESSANT THERAPY
     Dosage: 100 MILLIGRAM, ONCE A DAY
     Route: 065
  16. PROPRANOLOL [Suspect]
     Active Substance: PROPRANOLOL HYDROCHLORIDE
     Indication: HYPERTENSION
     Dosage: UNK
     Route: 065
  17. SULPIRIDE [Suspect]
     Active Substance: SULPIRIDE
     Indication: MAJOR DEPRESSION
     Dosage: 50 MILLIGRAM, ONCE A DAY
     Route: 065
  18. EZETIMIBE. [Concomitant]
     Active Substance: EZETIMIBE
     Indication: DYSLIPIDAEMIA
     Dosage: UNK
     Route: 065

REACTIONS (15)
  - Hyperthermia [Recovered/Resolved with Sequelae]
  - Poor peripheral circulation [Recovered/Resolved with Sequelae]
  - Off label use [Unknown]
  - Loss of personal independence in daily activities [Unknown]
  - Serotonin syndrome [Not Recovered/Not Resolved]
  - Myoclonus [Recovered/Resolved with Sequelae]
  - Hypertension [Recovered/Resolved with Sequelae]
  - Hypotonia [Recovered/Resolved with Sequelae]
  - Blood lactic acid increased [Recovered/Resolved with Sequelae]
  - Tachypnoea [Recovered/Resolved with Sequelae]
  - Tachycardia [Recovered/Resolved with Sequelae]
  - Product use in unapproved indication [Unknown]
  - Product use issue [Unknown]
  - Cerebellar syndrome [Unknown]
  - Depressed level of consciousness [Recovered/Resolved with Sequelae]

NARRATIVE: CASE EVENT DATE: 20150702
